FAERS Safety Report 9565597 (Version 1)
Quarter: 2013Q3

REPORT INFORMATION
  Report Type: Report from Study
  Country: US (occurrence: US)
  Receive Date: 20130930
  Receipt Date: 20130930
  Transmission Date: 20140515
  Serious: Yes (Other)
  Sender: FDA-Public Use
  Company Number: US-JNJFOC-20130913214

PATIENT
  Age: 64 Year
  Sex: Female
  Weight: 60.78 kg

DRUGS (10)
  1. REMICADE [Suspect]
     Indication: RHEUMATOID ARTHRITIS
     Route: 042
     Dates: start: 201212
  2. REMICADE [Suspect]
     Indication: RHEUMATOID ARTHRITIS
     Dosage: FIFTH INFUSION
     Route: 042
     Dates: start: 201309, end: 201309
  3. BENADRYL [Concomitant]
     Indication: PREMEDICATION
     Route: 065
     Dates: start: 201212
  4. ALBUTEROL [Concomitant]
     Indication: DYSPNOEA
     Route: 048
     Dates: start: 2012
  5. ALPRAZOLAM [Concomitant]
     Indication: ANXIETY
     Route: 048
  6. METOPROLOL [Concomitant]
     Indication: BLOOD PRESSURE
     Route: 048
  7. OXYCODONE [Concomitant]
     Indication: PAIN
     Dosage: 10-325 MG
     Route: 048
     Dates: start: 2011
  8. LYRICA [Concomitant]
     Indication: FIBROMYALGIA
     Route: 048
     Dates: start: 2004
  9. SIMVASTATIN [Concomitant]
     Indication: BLOOD CHOLESTEROL INCREASED
     Route: 065
     Dates: start: 201207
  10. PROTONIX [Concomitant]
     Indication: GASTRIC DISORDER
     Route: 048
     Dates: start: 2010

REACTIONS (6)
  - Osteoporosis [Unknown]
  - Arthralgia [Unknown]
  - Headache [Recovered/Resolved]
  - Infusion related reaction [Unknown]
  - Back pain [Unknown]
  - Drug ineffective [Unknown]
